FAERS Safety Report 4318243-4 (Version None)
Quarter: 2004Q1

REPORT INFORMATION
  Report Type: 
  Country: None (occurrence: None)
  Receive Date: 20040315
  Receipt Date: 20040225
  Transmission Date: 20041129
  Serious: Yes (Death)
  Sender: FDA-Public Use
  Company Number: A01200400935

PATIENT
  Sex: Male

DRUGS (3)
  1. PLAVIX [Suspect]
     Indication: ANGIOPATHY
     Dosage: ORAL
     Route: 048
  2. PLAVIX [Suspect]
     Indication: PROPHYLAXIS
     Dosage: ORAL
     Route: 048
  3. HEPARIN [Concomitant]

REACTIONS (2)
  - HAEMORRHAGIC STROKE [None]
  - PNEUMONIA [None]
